FAERS Safety Report 6439833-9 (Version None)
Quarter: 2009Q4

REPORT INFORMATION
  Report Type: 
  Country: None (occurrence: None)
  Receive Date: 20091112
  Receipt Date: 20091112
  Transmission Date: 20100525
  Serious: Yes (Other)
  Sender: FDA-Public Use
  Company Number: None

PATIENT
  Sex: Female
  Weight: 57 kg

DRUGS (1)
  1. LAMOTRIGINE [Suspect]
     Indication: EPILEPSY
     Dosage: 150 MG TABS 1 AM 2 PM P.O.
     Route: 048
     Dates: start: 20091101

REACTIONS (4)
  - DYSKINESIA [None]
  - INSOMNIA [None]
  - PARAESTHESIA [None]
  - PRODUCT SUBSTITUTION ISSUE [None]
